FAERS Safety Report 11212597 (Version 1)
Quarter: 2015Q2

REPORT INFORMATION
  Report Type: Spontaneous
  Country: US (occurrence: None)
  Receive Date: 20150622
  Receipt Date: 20150622
  Transmission Date: 20150821
  Serious: No
  Sender: FDA-Public Use
  Company Number: None

PATIENT
  Age: 61 Year
  Sex: Male

DRUGS (2)
  1. VIEKIRA WEEK PACK 28^S [Concomitant]
  2. RIBASPHERE [Suspect]
     Active Substance: RIBAVIRIN
     Indication: HEPATITIS C
     Dosage: 2 TABLETS EVERY-AM AND - EVERY PM ?BID?ORAL
     Route: 048
     Dates: start: 20150505

REACTIONS (6)
  - Chills [None]
  - Feeling hot [None]
  - Feeling abnormal [None]
  - Tremor [None]
  - Hyperhidrosis [None]
  - Speech disorder [None]

NARRATIVE: CASE EVENT DATE: 20150615
